FAERS Safety Report 6144204-9 (Version None)
Quarter: 2009Q2

REPORT INFORMATION
  Report Type: 
  Country: None (occurrence: None)
  Receive Date: 20090406
  Receipt Date: 20090327
  Transmission Date: 20091009
  Serious: Yes (Hospitalization)
  Sender: FDA-Public Use
  Company Number: PHHY2009JP06496

PATIENT
  Sex: Female

DRUGS (12)
  1. COMTAN [Suspect]
     Indication: DRUG EFFECT DECREASED
     Dosage: 400 MG DAILY
     Route: 048
     Dates: end: 20080121
  2. COMTAN [Suspect]
     Indication: PARKINSON'S DISEASE
  3. CARBIDOPA AND LEVODOPA [Concomitant]
     Indication: PARKINSON'S DISEASE
     Dosage: 600 MG
     Route: 048
     Dates: start: 20070829
  4. REQUIP [Concomitant]
     Indication: PARKINSON'S DISEASE
     Dosage: 3 MG
     Route: 048
     Dates: start: 20071219
  5. REQUIP [Concomitant]
     Dosage: 2 MG
     Route: 048
  6. PRAMIPEXOLE DIHYDROCHLORIDE [Concomitant]
     Indication: PARKINSON'S DISEASE
     Dosage: 1 MG
     Route: 048
  7. PRAMIPEXOLE DIHYDROCHLORIDE [Concomitant]
     Dosage: 0.5 MG
     Route: 048
     Dates: start: 20071219
  8. SYMMETREL [Concomitant]
     Indication: PARKINSON'S DISEASE
     Dosage: 100 MG
     Route: 048
     Dates: start: 20071219
  9. NAUZELIN [Concomitant]
     Dosage: 30 MG
     Route: 048
     Dates: start: 20070725
  10. TPN [Concomitant]
     Dosage: 200 ML
     Route: 048
     Dates: start: 20070725
  11. ZOLOFT [Concomitant]
     Dosage: 75 MG
     Route: 048
     Dates: start: 20070725
  12. BONAMINE [Concomitant]
     Dosage: 35 MG
     Route: 048
     Dates: start: 20070725

REACTIONS (7)
  - ABDOMINAL DISCOMFORT [None]
  - ASTHENIA [None]
  - BEDRIDDEN [None]
  - CONSTIPATION [None]
  - FALL [None]
  - GAIT DISTURBANCE [None]
  - SURGERY [None]
